FAERS Safety Report 5371357-2 (Version None)
Quarter: 2007Q2

REPORT INFORMATION
  Report Type: 
  Country: None (occurrence: None)
  Receive Date: 20070622
  Receipt Date: 20070608
  Transmission Date: 20071010
  Serious: Yes (Life-Threatening, Disabling, Other)
  Sender: FDA-Public Use
  Company Number: S05-BEL-04979-01

PATIENT
  Age: 60 Year
  Sex: Female
  Weight: 61 kg

DRUGS (5)
  1. SIPRALEXA (ESCITALOPRAM) [Suspect]
     Indication: DEPRESSION
     Dosage: 5 MG QD PO
     Route: 048
     Dates: start: 20050920, end: 20050920
  2. ENOXAPARIN SODIUM [Concomitant]
  3. ROSUVASTATINE (ROSUVASTATIN) [Concomitant]
  4. PANTOPRAZOLE SODIUM [Concomitant]
  5. ENOXAPARIN SODIUM [Concomitant]

REACTIONS (9)
  - BRADYCARDIA [None]
  - CAROTID ARTERY OCCLUSION [None]
  - CAROTID ARTERY STENOSIS [None]
  - HEMIPARESIS [None]
  - HYPERTENSION [None]
  - ISCHAEMIC CEREBRAL INFARCTION [None]
  - MALAISE [None]
  - RESPIRATORY ARREST [None]
  - SYNCOPE [None]
